FAERS Safety Report 8881814 (Version 1)
Quarter: 2012Q4

REPORT INFORMATION
  Report Type: 
  Country: US (occurrence: US)
  Receive Date: 20121101
  Receipt Date: 20121101
  Transmission Date: 20130627
  Serious: Yes (Hospitalization)
  Sender: FDA-Public Use
  Company Number: US-PFIZER INC-2012269394

PATIENT
  Age: 72 Year
  Sex: Male
  Weight: 88.89 kg

DRUGS (3)
  1. INLYTA [Suspect]
     Indication: METASTATIC RENAL CELL CARCINOMA
     Dosage: 5 mg, 2x/day
     Dates: start: 20120902, end: 20121017
  2. LISINOPRIL [Concomitant]
     Indication: HYPERTENSION
     Dosage: 20 mg, 2x/day
  3. AMLODIPINE [Concomitant]
     Indication: HYPERTENSION
     Dosage: 10 mg, daily

REACTIONS (3)
  - Pulmonary embolism [Not Recovered/Not Resolved]
  - Dyspnoea [Recovering/Resolving]
  - Anaemia [Unknown]
